FAERS Safety Report 25899118 (Version 1)
Quarter: 2025Q4

REPORT INFORMATION
  Report Type: Spontaneous
  Country: US (occurrence: US)
  Receive Date: 20251009
  Receipt Date: 20251009
  Transmission Date: 20260118
  Serious: No
  Sender: SANDOZ
  Company Number: US-SANDOZ-SDZ2025US072935

PATIENT
  Sex: Female
  Weight: 84.354 kg

DRUGS (61)
  1. AMOXICILLIN [Suspect]
     Active Substance: AMOXICILLIN
     Indication: Product used for unknown indication
     Dosage: UNK
     Route: 065
  2. AMOXICILLIN [Suspect]
     Active Substance: AMOXICILLIN
     Indication: Product used for unknown indication
     Dosage: 500 MG CAPSULE, TAKE 1 CAPSULE BY MOUTH 3 TIMES A DAY
     Route: 048
  3. AMOXICILLIN TRIHYDRATE [Suspect]
     Active Substance: AMOXICILLIN
     Indication: Product used for unknown indication
     Dosage: 500 MG TABLET, TAKE 1 TABLET BY MOUTH THREE TIMES A DAY UNTIL FINISHED
     Route: 048
  4. AMLODIPINE [Concomitant]
     Active Substance: AMLODIPINE BESYLATE
     Indication: Product used for unknown indication
     Dosage: 10 MG TABLET
     Route: 065
  5. AMLODIPINE [Concomitant]
     Active Substance: AMLODIPINE BESYLATE
     Dosage: 5 MG TABLET
     Route: 065
  6. AZELASTINE [Concomitant]
     Active Substance: AZELASTINE
     Indication: Product used for unknown indication
     Dosage: 0.05 % EYE DROPS, INSTILL 1 DROP INTO BOTH EYES TWICE A DAY
     Route: 047
  7. BISACODYL [Concomitant]
     Active Substance: BISACODYL
     Indication: Constipation
     Dosage: 10 MG RECTAL SUPPOSITORY INSERT 1 SUPPOSITORY BY RECTAL ROUTE EVERY DAY AS NEEDED
     Route: 054
  8. CEPHALEXIN [Concomitant]
     Active Substance: CEPHALEXIN
     Indication: Product used for unknown indication
     Dosage: 500 MG CAPSULE TAKE 1 CAPSULE BY MOUTH TWICE A DAY FOR 7 DAYS
     Route: 048
  9. CEQUA [Concomitant]
     Active Substance: CYCLOSPORINE
     Indication: Product used for unknown indication
     Dosage: 0.09 % EYE DROPS IN A DROPPERETTE INSTILL 1 DROP INTO BOTH EYES TWICE A DAY
     Route: 065
  10. CHLORHEXIDINE GLUCONATE [Concomitant]
     Active Substance: CHLORHEXIDINE GLUCONATE
     Indication: Product used for unknown indication
     Dosage: 0.12 % MOUTHWASH RINSE 15 ML^S TWICE DAILY AFTER BREAKFAST/BEFORE BEDTIME FOLLOWING BRUSHING AND FLO
     Route: 065
  11. CLOBETASOL [Concomitant]
     Active Substance: CLOBETASOL
     Indication: Product used for unknown indication
     Dosage: 0.05 % SCALP SOLUTION APPLY TO SCALP DAILY FOR ONE MONTH, TAKE ONE WEEK OFF. REPEAT AS NEEDED.
     Route: 065
  12. CLOBETASOL [Concomitant]
     Active Substance: CLOBETASOL
     Indication: Product used for unknown indication
     Dosage: 0.05 % SHAMPOO WASH SCALP TWO TIMES PER WEEK WITH SHOWERS (4MLS PER APPLICATION)
     Route: 065
  13. BETAMETHASONE\CLOTRIMAZOLE [Concomitant]
     Active Substance: BETAMETHASONE\CLOTRIMAZOLE
     Indication: Product used for unknown indication
     Dosage: 1 %-0.05 % TOPICAL CREAM PLEASE SEE ATTACHED FOR DETAILED DIRECTIONS
     Route: 065
  14. CORTISONE [Concomitant]
     Active Substance: CORTISONE
     Indication: Vulvovaginal pruritus
     Dosage: UNK
     Route: 065
  15. CORTISONE [Concomitant]
     Active Substance: CORTISONE
     Indication: Vulvovaginal discomfort
  16. CROMOLYN [Concomitant]
     Active Substance: CROMOLYN
     Indication: Product used for unknown indication
     Dosage: 4 % EYE DROPS INSTILL 1 DROP INTO BOTH EYES TWICE A DAY
     Route: 065
  17. DICLOFENAC [Concomitant]
     Active Substance: DICLOFENAC
     Indication: Product used for unknown indication
     Dosage: 1 % TOPICAL GEL
     Route: 061
  18. ESTRADIOL [Concomitant]
     Active Substance: ESTRADIOL
     Indication: Product used for unknown indication
     Dosage: 0.01% (0.1 MG/GRAM) VAGINAL CREAM INSERT 1 G EVERY DAY BY VAGINAL ROUTE AT BEDTIME.
     Route: 067
  19. ESTROGENS [Concomitant]
     Active Substance: ESTROGENS
     Indication: Vulvovaginal discomfort
     Dosage: UNK
     Route: 067
  20. FERROUS SULFATE [Concomitant]
     Active Substance: FERROUS SULFATE
     Indication: Product used for unknown indication
     Dosage: 325 MG (65 MG IRON) TABLET
     Route: 065
  21. FERROUS GLUCONATE [Concomitant]
     Active Substance: FERROUS GLUCONATE
     Indication: Product used for unknown indication
     Dosage: 324 MG (38 MG IRON) TABLET TAKE 1 TABLET BY MOUTH TWICE DAILY *AVOID MILK PRODUCTS 1 HOUR BEFORE OR
     Route: 048
  22. FERROUS SULFATE [Concomitant]
     Active Substance: FERROUS SULFATE
     Indication: Product used for unknown indication
     Dosage: 300 MG (60 MG IRON) TABLET 1 TABLET EVERY DAY BY ORAL ROUTE
     Route: 048
     Dates: start: 20211222
  23. FLUCONAZOLE [Concomitant]
     Active Substance: FLUCONAZOLE
     Indication: Product used for unknown indication
     Dosage: 150 MG TABLET TAKE 1 TABLET BY MOUTH EVERY DAY FOR 2 DAYS
     Route: 048
  24. FLUTICASONE PROPIONATE [Concomitant]
     Active Substance: FLUTICASONE PROPIONATE
     Indication: Product used for unknown indication
     Dosage: 50 MCG/ACTUATION NASAL SPRAY,SUSPENSION 1 SPRAY EVERY DAY BY NASAL ROUTE.
     Route: 045
  25. GABAPENTIN [Concomitant]
     Active Substance: GABAPENTIN
     Indication: Product used for unknown indication
     Dosage: 300 MG TABLET 1 TABLET 3 TIMES A DAY BY ORAL ROUTE
     Route: 048
     Dates: start: 20211222
  26. GABAPENTIN [Concomitant]
     Active Substance: GABAPENTIN
     Indication: Product used for unknown indication
     Dosage: 300 MG CAPSULE
     Route: 065
  27. HYDROCHLOROTHIAZIDE [Concomitant]
     Active Substance: HYDROCHLOROTHIAZIDE
     Indication: Product used for unknown indication
     Dosage: 25 MG TABLET
     Route: 065
  28. HYDROCORTISONE [Concomitant]
     Active Substance: HYDROCORTISONE
     Indication: Product used for unknown indication
     Dosage: 1 % TOPICAL CREAM
     Route: 061
  29. HYDROCORTISONE [Concomitant]
     Active Substance: HYDROCORTISONE
     Indication: Product used for unknown indication
     Dosage: 2.5 % TOPICAL CREAM APPLY TO DARK SPOTS/SCARRING NIGHTLY FOR 1 WEEK, TAKE A WEEK OFF. REPEAT AS NEED
     Route: 061
  30. HYDROCORTISONE [Concomitant]
     Active Substance: HYDROCORTISONE
     Dosage: 2.5 % TOPICAL CREAM WITH PERINEAL APPLICATOR APPLY SPARINGLY TO AFFECTED AREA 2 TO 4 TIMES A DAY
     Route: 061
  31. IBUPROFEN [Concomitant]
     Active Substance: IBUPROFEN
     Indication: Pelvic pain
     Dosage: 400 MG TABLET
     Route: 065
  32. IBUPROFEN [Concomitant]
     Active Substance: IBUPROFEN
     Indication: Pain management
     Dosage: 600 MG TABLET TAKE 1 TABLET 3 TIMES A DAY BY ORAL ROUTE AS NEEDED.
     Route: 048
  33. IBUPROFEN [Concomitant]
     Active Substance: IBUPROFEN
     Dosage: 800 MG TABLET TAKE 1 TABLET 3 TIMES A DAY BY ORAL ROUTE.
     Route: 048
     Dates: start: 20250602
  34. LORATADINE [Concomitant]
     Active Substance: LORATADINE
     Indication: Product used for unknown indication
     Dosage: 10 MG TABLET 1 TABLET EVERY DAY BY ORAL ROUTE.
     Route: 048
  35. LUMIGAN [Concomitant]
     Active Substance: BIMATOPROST
     Indication: Product used for unknown indication
     Dosage: UNK UNK, QN
     Route: 065
  36. METRONIDAZOLE [Concomitant]
     Active Substance: METRONIDAZOLE
     Indication: Product used for unknown indication
     Dosage: 500 MG TABLET TAKE 1 TABLET BY MOUTH TWICE A DAY FOR 7 DAYS
     Route: 048
  37. MUPIROCIN [Concomitant]
     Active Substance: MUPIROCIN
     Indication: Product used for unknown indication
     Dosage: 2 % TOPICAL OINTMENT
     Route: 061
  38. NITROFURANTOIN MONOHYDRATE MACROCRYSTALS [Concomitant]
     Active Substance: NITROFURANTOIN\NITROFURANTOIN MONOHYDRATE
     Indication: Product used for unknown indication
     Dosage: 100 MG CAPSULE TAKE 1 CAPSULE BY MOUTH EVERY 12 HOURS FOR 7 DAYS
     Route: 048
  39. NURTEC ODT [Concomitant]
     Active Substance: RIMEGEPANT SULFATE
     Indication: Product used for unknown indication
     Dosage: 75 MG DISINTEGRATING TABLET TAKE 1 TABLET BY MOUTH DISSOLVED IN MOUTH EVERY OTHER DAY
     Route: 048
  40. NYSTATIN [Concomitant]
     Active Substance: NYSTATIN
     Indication: Product used for unknown indication
     Dosage: 100,000 UNIT/GRAM TOPICAL CREAM APPLY TO AFFECTED AREA TWICE A DAY
     Route: 061
  41. OMEPRAZOLE [Concomitant]
     Active Substance: OMEPRAZOLE
     Indication: Product used for unknown indication
     Dosage: 20 MG DELAYED RELEASE,DISINTEGRATING TABLET 1 TABLET EVERY DAY BY ORAL ROUTE.
     Route: 048
     Dates: start: 20211222
  42. OMEPRAZOLE [Concomitant]
     Active Substance: OMEPRAZOLE
     Indication: Product used for unknown indication
     Dosage: 20 MG CAPSULE,DELAYED RELEASE
     Route: 065
  43. PHENAZOPYRIDINE [Concomitant]
     Active Substance: PHENAZOPYRIDINE
     Indication: Product used for unknown indication
     Dosage: 200 MG TABLET TAKE 1 TABLET BY MOUTH THREE TIMES A DAY FOR 3 DAYS
     Route: 048
  44. PHENYLEPHRINE [Concomitant]
     Active Substance: PHENYLEPHRINE
     Indication: Product used for unknown indication
     Dosage: 10 MG TABLET TAKE 1 TABLET BY MOUTH EVERY 12 HOURS AS NEEDED (OTC NOT COV)
     Route: 048
  45. POLYETHYLENE GLYCOL 3350 [Concomitant]
     Active Substance: POLYETHYLENE GLYCOL 3350
     Indication: Product used for unknown indication
     Dosage: 17 GRAM/DOSE ORAL POWDER
     Route: 065
  46. POTASSIUM CHLORIDE [Concomitant]
     Active Substance: POTASSIUM CHLORIDE
     Indication: Product used for unknown indication
     Dosage: 10 MEQ TABLET,EXTENDED RELEASE TAKE 1 TABLET BY MOUTH EVERY DAY
     Route: 048
  47. POTASSIUM CHLORIDE [Concomitant]
     Active Substance: POTASSIUM CHLORIDE
     Dosage: 20 MEQ TABLET,EXTENDED RELEASE(PART/CRYST)
     Route: 048
  48. PREPARATION H CREAM MAX STRENGTH [Concomitant]
     Active Substance: GLYCERIN\PETROLATUM\PHENYLEPHRINE HYDROCHLORIDE\PRAMOXINE HYDROCHLORIDE
     Indication: Product used for unknown indication
     Dosage: 0.25 %-1 % RECTAL CREAM INSERT 1 APPLICATION EVERY DAY BY RECTAL ROUTE.
     Route: 054
     Dates: start: 20220317
  49. PROGESTERONE [Concomitant]
     Active Substance: PROGESTERONE
     Indication: Product used for unknown indication
     Dosage: MICRONIZED 200 MG CAPSULE TAKE 1 CAPSULE EVERY 72 HOURS BY ORAL ROUTE AT BEDTIME
     Route: 048
  50. PURIFIED WATER [Concomitant]
     Active Substance: WATER
     Indication: Vulvovaginal dryness
     Dosage: INSERT 1G TWICE A WEEK AS NEEDED FOR VAGINAL DRYNESS.
     Route: 065
     Dates: start: 20240314
  51. SODIUM CHLORIDE [Concomitant]
     Active Substance: SODIUM CHLORIDE
     Indication: Product used for unknown indication
     Dosage: 0.65 % SPRAY AEROSOL TAKE 1 SPRAY TWICE A DAY BY NASAL ROUTE
     Route: 045
  52. SULFAMETHOXAZOLE AND TRIMETHOPRIM [Concomitant]
     Active Substance: SULFAMETHOXAZOLE\TRIMETHOPRIM
     Indication: Product used for unknown indication
     Dosage: 800 MG-TRIMETHOPRIM 160 MG TABLET
     Route: 065
  53. TERCONAZOLE [Concomitant]
     Active Substance: TERCONAZOLE
     Indication: Product used for unknown indication
     Dosage: 0.8 % VAGINAL CREAM INSERT 1 APPLICATORFUL VAGINALLY EVERY DAY AT BEDTIME
     Route: 067
  54. TOPIRAMATE [Concomitant]
     Active Substance: TOPIRAMATE
     Indication: Product used for unknown indication
     Dosage: 25 MG TABLET TAKE 1 TABLET BY MOUTH EVERY DAY
     Route: 048
  55. TOPIRAMATE [Concomitant]
     Active Substance: TOPIRAMATE
     Dosage: 50 MG TABLET TAKE 1 TABLET BY MOUTH TWICE A DAY
     Route: 048
  56. TRETINOIN [Concomitant]
     Active Substance: TRETINOIN
     Indication: Product used for unknown indication
     Dosage: 0.025 % TOPICAL CREAM APPLY A PEA SIZE AMOUNT TO FACE AND SCARRING NIGHTLY, WASH OFF IN MORNING. MOI
     Route: 061
  57. TRETINOIN [Concomitant]
     Active Substance: TRETINOIN
     Dosage: 0.05 % TOPICAL CREAM APPLY PEA SIZE AMOUNT TO FACE NIGHTLY WITH MOISTURIZER, WASH OFF IN THE MORNING
     Route: 061
  58. VAGISIL ANTI ITCH ORIGINAL STRENGTH [Concomitant]
     Active Substance: BENZOCAINE\RESORCINOL
     Indication: Product used for unknown indication
     Dosage: 5 %-2 % TOPICAL CREAM APPLY 2 G EVERY DAY BY TOPICAL ROUTE AS DIRECTED.
     Route: 061
     Dates: start: 20250602
  59. VITAMIN D2 [Concomitant]
     Active Substance: ERGOCALCIFEROL
     Indication: Product used for unknown indication
     Dosage: 1,250 MCG (50,000 UNIT) CAPSULE
     Route: 065
  60. VITAMIN D3 [Concomitant]
     Active Substance: CHOLECALCIFEROL
     Indication: Product used for unknown indication
     Dosage: 25 MCG (1,000 UNIT) TABLET 2 TABLETS TWICE A DAY BY ORAL ROUTE.
     Route: 048
  61. YUVAFEM [Concomitant]
     Active Substance: ESTRADIOL HEMIHYDRATE
     Indication: Product used for unknown indication
     Dosage: 10 MCG VAGINAL TABLET INSERT 1 INSERT TWICE A WEEK
     Route: 067

REACTIONS (1)
  - Drug hypersensitivity [Unknown]
